FAERS Safety Report 6627790-1 (Version None)
Quarter: 2010Q1

REPORT INFORMATION
  Report Type: 
  Country: None (occurrence: None)
  Receive Date: 20100301
  Receipt Date: 20090421
  Transmission Date: 20100710
  Serious: Yes (Hospitalization)
  Sender: FDA-Public Use
  Company Number: RB-14507-2009

PATIENT
  Age: 52 Year
  Sex: Male

DRUGS (1)
  1. SUBUTEX [Suspect]
     Indication: DRUG DEPENDENCE
     Dosage: 6 MG SUBLINGUAL
     Route: 060
     Dates: start: 20071001

REACTIONS (2)
  - DRUG WITHDRAWAL SYNDROME [None]
  - INSOMNIA [None]
